FAERS Safety Report 20372928 (Version 4)
Quarter: 2022Q1

REPORT INFORMATION
  Report Type: Report from Study
  Country: US (occurrence: US)
  Receive Date: 20220125
  Receipt Date: 20220303
  Transmission Date: 20220424
  Serious: Yes (Other)
  Sender: FDA-Public Use
  Company Number: US-ABBVIE-22K-163-4245372-00

PATIENT
  Sex: Female

DRUGS (3)
  1. RINVOQ [Suspect]
     Active Substance: UPADACITINIB
     Indication: Rheumatoid arthritis
     Route: 048
     Dates: start: 20200304, end: 20211225
  2. COVID-19 VACCINE NOS [Suspect]
     Active Substance: COVID-19 VACCINE NOS
     Indication: COVID-19 immunisation
     Route: 030
     Dates: start: 20210601, end: 20210601
  3. COVID-19 VACCINE NOS [Suspect]
     Active Substance: COVID-19 VACCINE NOS
     Route: 030
     Dates: start: 20210701, end: 20210701

REACTIONS (12)
  - Knee operation [Recovering/Resolving]
  - Dry throat [Unknown]
  - COVID-19 [Not Recovered/Not Resolved]
  - Neuropathy peripheral [Unknown]
  - Body temperature increased [Recovered/Resolved]
  - Tremor [Unknown]
  - Confusional state [Unknown]
  - Malaise [Unknown]
  - Erythema [Unknown]
  - Swelling face [Unknown]
  - Facial pain [Unknown]
  - Sinusitis [Not Recovered/Not Resolved]

NARRATIVE: CASE EVENT DATE: 20210101
